FAERS Safety Report 4773698-6 (Version None)
Quarter: 2005Q3

REPORT INFORMATION
  Report Type: 
  Country: None (occurrence: None)
  Receive Date: 20050919
  Receipt Date: 20050907
  Transmission Date: 20060218
  Serious: Yes (Hospitalization, Other)
  Sender: FDA-Public Use
  Company Number: HQWYE331609SEP05

PATIENT
  Age: 7 Year
  Sex: Male

DRUGS (2)
  1. CHILDREN'S ADVIL [Suspect]
     Indication: PYREXIA
     Dosage: ONE DOSE FOR 24 KG EVERY 6 HOURS, ORAL
     Route: 048
     Dates: start: 20050811, end: 20050814
  2. ACETAMINOPHEN [Suspect]
     Indication: PYREXIA
     Dosage: ONE DOSE FOR 24 KG EVERY 6 HOURS
     Dates: start: 20050811, end: 20040814

REACTIONS (4)
  - HEPATITIS [None]
  - PRURITUS [None]
  - RASH [None]
  - SKIN EXFOLIATION [None]
